FAERS Safety Report 8351379-X (Version None)
Quarter: 2012Q2

REPORT INFORMATION
  Report Type: 
  Country: None (occurrence: None)
  Receive Date: 20120510
  Receipt Date: 20120502
  Transmission Date: 20120825
  Serious: Yes (Death)
  Sender: FDA-Public Use
  Company Number: IE-MERCK-1101GBR00135

PATIENT
  Sex: Male

DRUGS (1)
  1. SINEMET [Suspect]
     Route: 048

REACTIONS (2)
  - DEATH [None]
  - DYSPHAGIA [None]
